FAERS Safety Report 14660488 (Version 1)
Quarter: 2018Q1

REPORT INFORMATION
  Report Type: Spontaneous
  Country: US (occurrence: US)
  Receive Date: 20180317
  Receipt Date: 20180317
  Transmission Date: 20180509
  Serious: No
  Sender: FDA-Public Use
  Company Number: None

PATIENT
  Age: 33 Year
  Sex: Female
  Weight: 96.75 kg

DRUGS (3)
  1. VITAMIN B12 GUMMIES [Concomitant]
  2. CEFDINIR. [Suspect]
     Active Substance: CEFDINIR
     Indication: PHARYNGITIS STREPTOCOCCAL
     Dosage: ?          QUANTITY:20 CAPSULE(S);?
     Route: 048
     Dates: start: 20180308
  3. ALEVE [Concomitant]
     Active Substance: NAPROXEN SODIUM

REACTIONS (5)
  - Fatigue [None]
  - Urticaria [None]
  - Fungal infection [None]
  - Dizziness [None]
  - Pain [None]

NARRATIVE: CASE EVENT DATE: 20180317
